FAERS Safety Report 8965581 (Version 1)
Quarter: 2012Q4

REPORT INFORMATION
  Report Type: Spontaneous
  Country: US (occurrence: None)
  Receive Date: 20121212
  Receipt Date: 20121212
  Transmission Date: 20130627
  Serious: Yes (Other)
  Sender: FDA-Public Use
  Company Number: None

PATIENT
  Age: 42 Year
  Sex: Male
  Weight: 88 kg

DRUGS (2)
  1. LEVITRA [Suspect]
     Indication: RASH FACE
     Route: 048
  2. LEVITRA [Suspect]
     Indication: IRRITATION SKIN
     Route: 048

REACTIONS (2)
  - Rash [None]
  - Skin irritation [None]
